FAERS Safety Report 5587463-3 (Version None)
Quarter: 2008Q1

REPORT INFORMATION
  Report Type: 
  Country: None (occurrence: None)
  Receive Date: 20080110
  Receipt Date: 20071219
  Transmission Date: 20080703
  Serious: No
  Sender: FDA-Public Use
  Company Number: US-BOEHRINGER INGELHEIM PHARMACEUTICALS, INC.-2007-BP-26599BP

PATIENT
  Sex: Male

DRUGS (3)
  1. SPIRIVA [Suspect]
     Indication: EMPHYSEMA
     Route: 055
     Dates: start: 20061201
  2. COMBIVENT [Concomitant]
     Indication: EMPHYSEMA
  3. LORAZEPAM [Concomitant]
     Indication: ANXIETY

REACTIONS (2)
  - DIZZINESS [None]
  - MUSCULOSKELETAL CHEST PAIN [None]
